FAERS Safety Report 14067064 (Version 1)
Quarter: 2017Q4

REPORT INFORMATION
  Report Type: Spontaneous
  Country: CZ (occurrence: CZ)
  Receive Date: 20171010
  Receipt Date: 20171010
  Transmission Date: 20180321
  Serious: Yes (Other)
  Sender: FDA-Public Use
  Company Number: CZ-CHARTWELL PHARMA-2029373

PATIENT
  Age: 34 Year
  Sex: Male

DRUGS (1)
  1. DOXYCYCLINE HYCLATE. [Suspect]
     Active Substance: DOXYCYCLINE HYCLATE
     Indication: STAPHYLOCOCCAL INFECTION

REACTIONS (2)
  - Condition aggravated [Recovered/Resolved]
  - Lymphomatoid papulosis [Recovered/Resolved]
